FAERS Safety Report 9471543 (Version 1)
Quarter: 2013Q3

REPORT INFORMATION
  Report Type: Spontaneous
  Country: DE (occurrence: DE)
  Receive Date: 20130822
  Receipt Date: 20130822
  Transmission Date: 20140515
  Serious: Yes (Other)
  Sender: FDA-Public Use
  Company Number: DE-ACTAVIS-2013-14985

PATIENT
  Age: 24 Year
  Sex: Male

DRUGS (1)
  1. FINASTERIDE (UNKNOWN) [Suspect]
     Indication: ANDROGENETIC ALOPECIA
     Dosage: 1 MG, DAILY
     Route: 048
     Dates: end: 20121204

REACTIONS (1)
  - Hepatic enzyme increased [Recovered/Resolved]
